FAERS Safety Report 14376407 (Version 1)
Quarter: 2018Q1

REPORT INFORMATION
  Report Type: Spontaneous
  Country: US (occurrence: US)
  Receive Date: 20180110
  Receipt Date: 20180110
  Transmission Date: 20180509
  Serious: Yes (Hospitalization)
  Sender: FDA-Public Use
  Company Number: None

PATIENT
  Age: 50 Year
  Sex: Female

DRUGS (7)
  1. ONDANSETRON [Concomitant]
     Active Substance: ONDANSETRON
  2. METHOCARBAMOL. [Concomitant]
     Active Substance: METHOCARBAMOL
  3. HYDROCO/APP [Concomitant]
  4. IBRANCE [Suspect]
     Active Substance: PALBOCICLIB
     Indication: METASTATIC CARCINOID TUMOUR
     Route: 048
     Dates: start: 20170516
  5. VALIUM [Concomitant]
     Active Substance: DIAZEPAM
  6. PROCHLORPER [Concomitant]
  7. LETROZOLE. [Concomitant]
     Active Substance: LETROZOLE

REACTIONS (1)
  - Nephrectomy [None]

NARRATIVE: CASE EVENT DATE: 20171214
